FAERS Safety Report 7692242-7 (Version None)
Quarter: 2011Q3

REPORT INFORMATION
  Report Type: 
  Country: None (occurrence: None)
  Receive Date: 20110818
  Receipt Date: 20110815
  Transmission Date: 20111222
  Serious: Yes (Life-Threatening, Hospitalization, Other)
  Sender: FDA-Public Use
  Company Number: BR-BAYER-2011-057358

PATIENT
  Age: 68 Year
  Sex: Male

DRUGS (4)
  1. AVELOX [Suspect]
     Indication: SINUSITIS
     Dosage: 1 DF, UNK
     Route: 048
     Dates: start: 20110508, end: 20110508
  2. ASPIRIN [Concomitant]
     Indication: CARDIOVASCULAR EVENT PROPHYLAXIS
     Dosage: 100 MG, UNK
     Route: 048
  3. ATACAND [Concomitant]
     Indication: HYPERTENSION
     Dosage: 8 MG, QD
     Route: 048
  4. MOTILIUM [Interacting]
     Dosage: UNK
     Route: 048
     Dates: start: 20110508

REACTIONS (5)
  - BURNING SENSATION [None]
  - HYPOTENSION [None]
  - PALPITATIONS [None]
  - CONVULSION [None]
  - CEREBRAL ATROPHY [None]
